FAERS Safety Report 19154489 (Version 9)
Quarter: 2022Q1

REPORT INFORMATION
  Report Type: Spontaneous
  Country: US (occurrence: US)
  Receive Date: 20210419
  Receipt Date: 20220125
  Transmission Date: 20220424
  Serious: Yes (Hospitalization, Other)
  Sender: FDA-Public Use
  Company Number: US-PFIZER INC-2021198952

PATIENT
  Age: 76 Year
  Sex: Female
  Weight: 58.05 kg

DRUGS (1)
  1. ESTRING [Suspect]
     Active Substance: ESTRADIOL
     Indication: Prolapse
     Dosage: 2 MG

REACTIONS (4)
  - Bladder prolapse [Unknown]
  - Device issue [Unknown]
  - Device use issue [Unknown]
  - Off label use [Unknown]
